FAERS Safety Report 25906521 (Version 1)
Quarter: 2025Q4

REPORT INFORMATION
  Report Type: Spontaneous
  Country: US (occurrence: None)
  Receive Date: 20251009
  Receipt Date: 20251009
  Transmission Date: 20260117
  Serious: Yes (Life-Threatening, Hospitalization, Other)
  Sender: FDA-CTU
  Company Number: None

PATIENT
  Age: 69 Year
  Sex: Female
  Weight: 73 kg

DRUGS (1)
  1. KEYTRUDA [Suspect]
     Active Substance: PEMBROLIZUMAB
     Dates: start: 20250820, end: 20250820

REACTIONS (18)
  - Diplopia [None]
  - Fatigue [None]
  - Cataract [None]
  - Dysphagia [None]
  - Neck pain [None]
  - Back pain [None]
  - Asthenia [None]
  - Dysarthria [None]
  - Dyspnoea exertional [None]
  - Myasthenia gravis [None]
  - Plasmapheresis [None]
  - Respiratory failure [None]
  - Ventricular tachycardia [None]
  - Bradycardia [None]
  - Myocarditis [None]
  - Complication associated with device [None]
  - Infection [None]
  - Immune system disorder [None]

NARRATIVE: CASE EVENT DATE: 20250905
